FAERS Safety Report 4939327-3 (Version None)
Quarter: 2006Q1

REPORT INFORMATION
  Report Type: 
  Country: None (occurrence: None)
  Receive Date: 20060306
  Receipt Date: 20050215
  Transmission Date: 20060701
  Serious: Yes (Death, Hospitalization)
  Sender: FDA-Public Use
  Company Number: 2006PL000006

PATIENT
  Age: 68 Year
  Sex: Male

DRUGS (7)
  1. ZYLOPRIM [Suspect]
     Indication: ANTIPSYCHOTIC DRUG LEVEL INCREASED
     Dosage: PO
     Route: 048
  2. AMLODIPINE BESYLATE [Concomitant]
  3. ATENOLOL [Concomitant]
  4. AMINO ACIDS [Concomitant]
  5. FUROSEMIDE [Concomitant]
  6. SPIRONOLACTONE [Concomitant]
  7. UROSODEOXYCHOLIC ACID [Concomitant]

REACTIONS (8)
  - COMA HEPATIC [None]
  - DRUG HYPERSENSITIVITY [None]
  - HEPATIC ENZYME INCREASED [None]
  - HEPATIC FAILURE [None]
  - LOBAR PNEUMONIA [None]
  - LYMPHADENOPATHY [None]
  - STEVENS-JOHNSON SYNDROME [None]
  - TOXIC EPIDERMAL NECROLYSIS [None]
